FAERS Safety Report 9332125 (Version 1)
Quarter: 2013Q2

REPORT INFORMATION
  Report Type: Report from Study
  Country: CN (occurrence: CN)
  Receive Date: 20130606
  Receipt Date: 20130606
  Transmission Date: 20140414
  Serious: Yes (Other)
  Sender: FDA-Public Use
  Company Number: CN-ROCHE-1229706

PATIENT
  Sex: 0

DRUGS (2)
  1. CAPECITABINE [Suspect]
     Indication: RECTAL CANCER
     Route: 065
  2. 5-FU [Suspect]
     Indication: RECTAL CANCER
     Route: 065

REACTIONS (3)
  - Diarrhoea [Unknown]
  - Skin toxicity [Unknown]
  - Neutropenia [Unknown]
